FAERS Safety Report 4709966-3 (Version None)
Quarter: 2005Q3

REPORT INFORMATION
  Report Type: 
  Country: None (occurrence: None)
  Receive Date: 20050706
  Receipt Date: 20050620
  Transmission Date: 20060218
  Serious: Yes (Life-Threatening)
  Sender: FDA-Public Use
  Company Number: S05-FRA-01492-01

PATIENT
  Age: 97 Year
  Sex: Female
  Weight: 38.8 kg

DRUGS (4)
  1. CITALOPRAM HYDROBROMIDE [Suspect]
  2. EBIXA                    (MEMANTINE HYDROCHLORIDE) [Suspect]
     Dates: start: 20050128, end: 20050225
  3. CITALOPRAM HYDROBROMIDE [Concomitant]
  4. FOLIC ACID [Concomitant]

REACTIONS (5)
  - ASTHENIA [None]
  - DISTURBANCE IN ATTENTION [None]
  - GLASGOW COMA SCALE ABNORMAL [None]
  - LUNG DISORDER [None]
  - OXYGEN SATURATION DECREASED [None]
